FAERS Safety Report 24409303 (Version 1)
Quarter: 2024Q4

REPORT INFORMATION
  Report Type: Report from Study
  Country: GB (occurrence: GB)
  Receive Date: 20241008
  Receipt Date: 20241008
  Transmission Date: 20250115
  Serious: Yes (Other)
  Sender: UCB
  Company Number: GB-UCBSA-2023058333

PATIENT
  Age: 36 Year
  Sex: Female
  Weight: 53.515 kg

DRUGS (6)
  1. CERTOLIZUMAB PEGOL [Suspect]
     Active Substance: CERTOLIZUMAB PEGOL
     Indication: Psoriasis
     Dosage: 200 MILLIGRAM, EV 2 WEEKS(QOW), 28/40 WEEKS
     Route: 058
     Dates: start: 20231207
  2. CERTOLIZUMAB PEGOL [Suspect]
     Active Substance: CERTOLIZUMAB PEGOL
     Indication: Psoriatic arthropathy
  3. ENOXAPARIN SODIUM [Concomitant]
     Active Substance: ENOXAPARIN SODIUM
     Indication: In vitro fertilisation
     Dosage: 40, ONCE DAILY (QD), PRECONCEPTION TO WEEK 14/40
  4. PREDNISOLONE [Concomitant]
     Active Substance: PREDNISOLONE
     Indication: In vitro fertilisation
     Dosage: 10 MILLIGRAM, ONCE DAILY (QD), PRECONCEPTION TO WEEK 14/40
  5. PROGESTERONE [Concomitant]
     Active Substance: PROGESTERONE
     Indication: In vitro fertilisation
     Dosage: UNK UNK, 3X/DAY (TID), PRECONCEPTION TO WEEK 14/40
  6. ESTROGENS [Concomitant]
     Active Substance: ESTROGENS
     Indication: Product used for unknown indication
     Dosage: UNK

REACTIONS (3)
  - Polyhydramnios [Unknown]
  - Maternal exposure during pregnancy [Unknown]
  - Maternal exposure during breast feeding [Unknown]

NARRATIVE: CASE EVENT DATE: 20231207
